FAERS Safety Report 5150198-5 (Version None)
Quarter: 2006Q4

REPORT INFORMATION
  Report Type: 
  Country: None (occurrence: None)
  Receive Date: 20061114
  Receipt Date: 20060521
  Transmission Date: 20070319
  Serious: Yes (Hospitalization)
  Sender: FDA-Public Use
  Company Number: US-AMGEN-STX180400

PATIENT
  Sex: Male

DRUGS (11)
  1. ENBREL [Suspect]
     Indication: PSORIATIC ARTHROPATHY
     Route: 058
     Dates: start: 20031230
  2. ENBREL [Suspect]
     Indication: PSORIASIS
  3. POTASSIUM CHLORIDE [Concomitant]
  4. PROTONIX [Concomitant]
  5. GLYBURIDE [Concomitant]
  6. QUINAPRIL [Concomitant]
  7. PRAVACHOL [Concomitant]
  8. VERAPAMIL [Concomitant]
  9. PLAVIX [Concomitant]
  10. DIOVAN [Concomitant]
  11. ASPIRIN [Concomitant]

REACTIONS (11)
  - ARTERIOSCLEROSIS [None]
  - CAROTID ARTERY STENOSIS [None]
  - CEREBRAL INFARCTION [None]
  - CEREBROVASCULAR ACCIDENT [None]
  - COMPUTERISED TOMOGRAM ABNORMAL [None]
  - CONFUSIONAL STATE [None]
  - CORONARY ARTERY DISEASE [None]
  - CORONARY ARTERY STENOSIS [None]
  - EYE PAIN [None]
  - MALAISE [None]
  - NUCLEAR MAGNETIC RESONANCE IMAGING BRAIN ABNORMAL [None]
